FAERS Safety Report 15730981 (Version 1)
Quarter: 2018Q4

REPORT INFORMATION
  Report Type: Spontaneous
  Country: IT (occurrence: IT)
  Receive Date: 20181217
  Receipt Date: 20181217
  Transmission Date: 20190205
  Serious: Yes (Death)
  Sender: FDA-Public Use
  Company Number: IT-TEVA-2018-IT-987190

PATIENT
  Age: 68 Year
  Sex: Male
  Weight: 105 kg

DRUGS (6)
  1. RANITIDINE. [Concomitant]
     Active Substance: RANITIDINE
  2. ALOXI 500 MICROGRAMS SOFT CAPSULES [Concomitant]
  3. SOLDESAM [Concomitant]
     Active Substance: DEXAMETHASONE
  4. CARBOPLATIN. [Suspect]
     Active Substance: CARBOPLATIN
     Indication: LUNG NEOPLASM MALIGNANT
     Dates: start: 20180112
  5. EMEND [Concomitant]
     Active Substance: APREPITANT
  6. ETOPOSIDE. [Suspect]
     Active Substance: ETOPOSIDE
     Indication: LUNG NEOPLASM MALIGNANT
     Dates: start: 20180112

REACTIONS (1)
  - Enterovesical fistula [Fatal]

NARRATIVE: CASE EVENT DATE: 20180219
